FAERS Safety Report 6695047-9 (Version None)
Quarter: 2010Q2

REPORT INFORMATION
  Report Type: 
  Country: None (occurrence: None)
  Receive Date: 20100423
  Receipt Date: 20100318
  Transmission Date: 20101027
  Serious: Yes (Hospitalization)
  Sender: FDA-Public Use
  Company Number: PHHY2010US24654

PATIENT
  Age: 3 Year
  Sex: Male
  Weight: 15.873 kg

DRUGS (1)
  1. ELIDEL [Suspect]
     Indication: ECZEMA
     Dosage: SMALL AMOUNT AS NEEDED
     Route: 061
     Dates: start: 20040512, end: 20050310

REACTIONS (8)
  - ABDOMINAL PAIN [None]
  - APPLICATION SITE PAIN [None]
  - DYSPNOEA [None]
  - LETHARGY [None]
  - OXYGEN SATURATION DECREASED [None]
  - PNEUMONIA [None]
  - PYREXIA [None]
  - WHITE BLOOD CELL COUNT INCREASED [None]
